FAERS Safety Report 16168994 (Version 1)
Quarter: 2019Q2

REPORT INFORMATION
  Report Type: Spontaneous
  Country: US (occurrence: US)
  Receive Date: 20190305
  Receipt Date: 20190305
  Transmission Date: 20190711
  Serious: Yes (Life-Threatening, Hospitalization)
  Sender: FDA-Public Use
  Company Number: None

PATIENT
  Age: 44 Year
  Sex: Female

DRUGS (1)
  1. AJOVY [Suspect]
     Active Substance: FREMANEZUMAB-VFRM
     Indication: MIGRAINE
     Dosage: ?          OTHER FREQUENCY:ONCE/MONTH;?
     Route: 030
     Dates: start: 20181213

REACTIONS (6)
  - Supraventricular tachycardia [None]
  - Sinus bradycardia [None]
  - Sinus arrhythmia [None]
  - Extrasystoles [None]
  - Ventricular extrasystoles [None]
  - Supraventricular extrasystoles [None]

NARRATIVE: CASE EVENT DATE: 20190205
